FAERS Safety Report 6565938-8 (Version None)
Quarter: 2010Q1

REPORT INFORMATION
  Report Type: 
  Country: None (occurrence: None)
  Receive Date: 20100129
  Receipt Date: 20100129
  Transmission Date: 20100710
  Serious: No
  Sender: FDA-Public Use
  Company Number: None

PATIENT
  Sex: Male
  Weight: 46.2669 kg

DRUGS (2)
  1. DIVALPROEX SODIUM EXTENDED RELEASE [Suspect]
     Indication: AUTISM
     Dosage: 500MG 3 TABS AT BEDTIME ORALLY
     Route: 048
     Dates: start: 20090713, end: 20090823
  2. DIVALPROEX SODIUM EXTENDED RELEASE [Suspect]
     Indication: OSTEOARTHRITIS
     Dosage: 500MG 3 TABS AT BEDTIME ORALLY
     Route: 048
     Dates: start: 20090713, end: 20090823

REACTIONS (5)
  - AGGRESSION [None]
  - ANGER [None]
  - PHYSICAL ABUSE [None]
  - PRODUCT SUBSTITUTION ISSUE [None]
  - SCREAMING [None]
